FAERS Safety Report 8428612-9 (Version None)
Quarter: 2012Q2

REPORT INFORMATION
  Report Type: 
  Country: None (occurrence: None)
  Receive Date: 20120606
  Receipt Date: 20120606
  Transmission Date: 20120825
  Serious: Yes (Hospitalization)
  Sender: FDA-Public Use
  Company Number: None

PATIENT
  Sex: Female
  Weight: 65.7716 kg

DRUGS (1)
  1. LIVALO [Suspect]
     Indication: BLOOD CHOLESTEROL INCREASED
     Dosage: 2 MG BY MOUTH ORAL NOVEMBER TO MAR 8, 2012
     Route: 048
     Dates: end: 20120308

REACTIONS (3)
  - FEELING HOT [None]
  - COLD SWEAT [None]
  - HEPATIC PAIN [None]
